FAERS Safety Report 19120692 (Version 1)
Quarter: 2021Q2

REPORT INFORMATION
  Report Type: Spontaneous
  Country: US (occurrence: US)
  Receive Date: 20210411
  Receipt Date: 20210411
  Transmission Date: 20210717
  Serious: Yes (Disabling)
  Sender: FDA-Public Use
  Company Number: None

PATIENT
  Age: 55 Year
  Sex: Female
  Weight: 65.7 kg

DRUGS (5)
  1. PROGESTERONE. [Concomitant]
     Active Substance: PROGESTERONE
  2. FLUTICASONE. [Concomitant]
     Active Substance: FLUTICASONE
  3. NATURE?THROID [Concomitant]
     Active Substance: THYROID, PORCINE
  4. LEVAQUIN [Suspect]
     Active Substance: LEVOFLOXACIN
     Indication: SINUSITIS
     Dates: start: 20210327, end: 20210403
  5. STELARA [Concomitant]
     Active Substance: USTEKINUMAB

REACTIONS (1)
  - Tendon pain [None]

NARRATIVE: CASE EVENT DATE: 20210327
